FAERS Safety Report 7928950-X (Version None)
Quarter: 2011Q4

REPORT INFORMATION
  Report Type: 
  Country: None (occurrence: None)
  Receive Date: 20111118
  Receipt Date: 20111114
  Transmission Date: 20120403
  Serious: Yes (Life-Threatening)
  Sender: FDA-Public Use
  Company Number: JP-MERCK-1110USA04478

PATIENT
  Age: 71 Year
  Sex: Male
  Weight: 58 kg

DRUGS (4)
  1. LATANOPROST [Concomitant]
     Indication: GLAUCOMA
     Route: 047
     Dates: start: 20100115, end: 20111031
  2. JANUVIA [Suspect]
     Indication: BLOOD GLUCOSE INCREASED
     Route: 048
     Dates: start: 20110723, end: 20110726
  3. RHYTHMY [Concomitant]
     Indication: INSOMNIA
     Route: 048
     Dates: start: 20100723, end: 20111031
  4. TAFLUPROST [Concomitant]
     Indication: GLAUCOMA
     Route: 047
     Dates: start: 20101008, end: 20111031

REACTIONS (5)
  - AMNESIA [None]
  - ALTERED STATE OF CONSCIOUSNESS [None]
  - DIZZINESS [None]
  - SOMNOLENCE [None]
  - ROAD TRAFFIC ACCIDENT [None]
